FAERS Safety Report 7702208-6 (Version None)
Quarter: 2011Q3

REPORT INFORMATION
  Report Type: 
  Country: None (occurrence: None)
  Receive Date: 20110822
  Receipt Date: 20110810
  Transmission Date: 20111222
  Serious: Yes (Other)
  Sender: FDA-Public Use
  Company Number: JP-AMGEN-JPNSP2011036743

PATIENT
  Age: 70 Year
  Sex: Female

DRUGS (6)
  1. ROMIPLATE [Suspect]
     Dosage: 3 A?G, UNK
     Route: 058
     Dates: start: 20110526, end: 20110615
  2. ROMIPLATE [Suspect]
     Dosage: 4 A?G/KG, UNK
     Route: 058
     Dates: start: 20110616
  3. ROMIPLATE [Suspect]
     Indication: IDIOPATHIC THROMBOCYTOPENIC PURPURA
     Dosage: 1 A?G/KG, UNK
     Route: 058
     Dates: start: 20110421, end: 20110511
  4. PREDNISOLONE [Concomitant]
     Dosage: 10 MG, UNK
     Route: 048
     Dates: start: 20100901
  5. PREDNISOLONE [Concomitant]
     Dosage: 5 MG, UNK
     Route: 048
     Dates: start: 20101101, end: 20110428
  6. ROMIPLATE [Suspect]
     Dosage: 2 A?G, UNK
     Route: 058
     Dates: start: 20110512, end: 20110525

REACTIONS (4)
  - PLATELET COUNT ABNORMAL [None]
  - PURPURA [None]
  - ANTIBODY TEST [None]
  - PETECHIAE [None]
